FAERS Safety Report 10168390 (Version 2)
Quarter: 2014Q2

REPORT INFORMATION
  Report Type: Spontaneous
  Country: FR (occurrence: FR)
  Receive Date: 20140513
  Receipt Date: 20140605
  Transmission Date: 20141212
  Serious: Yes (Hospitalization)
  Sender: FDA-Public Use
  Company Number: FR-ROCHE-1398077

PATIENT
  Age: 79 Year
  Sex: Female

DRUGS (5)
  1. XOLAIR [Suspect]
     Indication: ASTHMA
     Route: 042
     Dates: start: 20131015, end: 201311
  2. SERETIDE [Suspect]
     Indication: PRODUCT USED FOR UNKNOWN INDICATION
     Route: 050
  3. FLIXONASE [Suspect]
     Indication: PRODUCT USED FOR UNKNOWN INDICATION
     Dosage: PRN
     Route: 045
  4. AERIUS [Concomitant]
  5. VENTOLINE [Concomitant]

REACTIONS (1)
  - Diffuse large B-cell lymphoma [Not Recovered/Not Resolved]
